FAERS Safety Report 17096145 (Version 2)
Quarter: 2020Q1

REPORT INFORMATION
  Report Type: Spontaneous
  Country: US (occurrence: US)
  Receive Date: 20191202
  Receipt Date: 20200127
  Transmission Date: 20200409
  Serious: No
  Sender: FDA-Public Use
  Company Number: US-SHIRE-US201941139

PATIENT
  Sex: Female

DRUGS (2)
  1. VYVANSE [Suspect]
     Active Substance: LISDEXAMFETAMINE DIMESYLATE
     Indication: DISTURBANCE IN ATTENTION
  2. VYVANSE [Suspect]
     Active Substance: LISDEXAMFETAMINE DIMESYLATE
     Indication: NARCOLEPSY
     Dosage: 30 MILLIGRAM, 1X/DAY:QD
     Route: 048
     Dates: start: 201907

REACTIONS (4)
  - Intentional product use issue [Recovered/Resolved]
  - Unevaluable event [Recovered/Resolved]
  - Product dose omission [Recovered/Resolved]
  - Inability to afford medication [Recovered/Resolved]
